FAERS Safety Report 10620261 (Version 1)
Quarter: 2014Q4

REPORT INFORMATION
  Report Type: Spontaneous
  Country: DE (occurrence: DE)
  Receive Date: 20141202
  Receipt Date: 20141202
  Transmission Date: 20150529
  Serious: Yes (Other)
  Sender: FDA-Public Use
  Company Number: DE-TEVA-524723GER

PATIENT
  Age: 42 Year
  Sex: Female
  Weight: 67 kg

DRUGS (3)
  1. METRONIDAZOL [Concomitant]
     Active Substance: METRONIDAZOLE
     Indication: ABSCESS ORAL
     Dosage: 800 MILLIGRAM DAILY;
     Route: 048
     Dates: start: 20140918, end: 20140920
  2. AMOXICILLIN. [Suspect]
     Active Substance: AMOXICILLIN
     Indication: ABSCESS ORAL
     Dosage: 1200 MILLIGRAM DAILY;
     Route: 048
     Dates: start: 20140918, end: 20140923
  3. RECTODELT [Concomitant]
     Active Substance: PREDNISONE
     Indication: ABSCESS ORAL
     Dosage: 100 MILLIGRAM DAILY;
     Route: 054
     Dates: start: 20140923

REACTIONS (3)
  - Circulatory collapse [Recovered/Resolved]
  - Pruritus [Recovered/Resolved]
  - Rash [Recovered/Resolved]

NARRATIVE: CASE EVENT DATE: 20140920
